FAERS Safety Report 8810660 (Version 1)
Quarter: 2012Q4

REPORT INFORMATION
  Report Type: Spontaneous
  Country: US (occurrence: None)
  Receive Date: 20120924
  Receipt Date: 20120924
  Transmission Date: 20130627
  Serious: Yes (Other)
  Sender: FDA-Public Use
  Company Number: None

PATIENT
  Sex: Female
  Weight: 98.43 kg

DRUGS (9)
  1. ABILIFY [Suspect]
     Indication: MANIC DEPRESSION
     Dates: start: 20100101, end: 20110601
  2. ABILIFY [Suspect]
     Indication: POST-TRAUMATIC STRESS DISORDER
     Dates: start: 20100101, end: 20110601
  3. CLONAZEPAM [Concomitant]
  4. AMBIEN [Concomitant]
  5. GABAPENTIN [Concomitant]
  6. FLEXIREL [Concomitant]
  7. LISINAPRIL [Concomitant]
  8. OMEPRAZOLE [Concomitant]
  9. TYLENOL [Concomitant]

REACTIONS (1)
  - Arrhythmia [None]
